FAERS Safety Report 20385371 (Version 1)
Quarter: 2022Q1

REPORT INFORMATION
  Report Type: Spontaneous
  Country: US (occurrence: US)
  Receive Date: 20220127
  Receipt Date: 20220127
  Transmission Date: 20220424
  Serious: No
  Sender: FDA-Public Use
  Company Number: US-ALLERGAN-2110451US

PATIENT
  Sex: Female

DRUGS (2)
  1. BOTOX [Suspect]
     Active Substance: ONABOTULINUMTOXINA
     Indication: Facial paralysis
     Dosage: UNK, SINGLE
     Dates: start: 202011, end: 202011
  2. BOTOX [Suspect]
     Active Substance: ONABOTULINUMTOXINA
     Indication: Bell^s palsy

REACTIONS (3)
  - Off label use [Unknown]
  - Drug ineffective [Unknown]
  - Lagophthalmos [Unknown]

NARRATIVE: CASE EVENT DATE: 20201101
